FAERS Safety Report 9814398 (Version 1)
Quarter: 2014Q1

REPORT INFORMATION
  Report Type: Spontaneous
  Country: US (occurrence: US)
  Receive Date: 20140113
  Receipt Date: 20140113
  Transmission Date: 20141002
  Serious: Yes (Other)
  Sender: FDA-Public Use
  Company Number: US-ENDO PHARMACEUTICALS INC.-HCDA20130036

PATIENT
  Age: 35 Year
  Sex: Male

DRUGS (2)
  1. HYDROCODONE/ACETAMINOPHEN [Suspect]
     Indication: DRUG DIVERSION
     Dosage: N/A
  2. XANAX [Suspect]
     Indication: DRUG DIVERSION
     Dosage: N/A

REACTIONS (1)
  - Drug diversion [Unknown]
